FAERS Safety Report 4667466-3 (Version None)
Quarter: 2005Q2

REPORT INFORMATION
  Report Type: 
  Country: None (occurrence: None)
  Receive Date: 20050520
  Receipt Date: 20050512
  Transmission Date: 20051028
  Serious: Yes (Other)
  Sender: FDA-Public Use
  Company Number: BW-BOEHRINGER INGELHEIM PHARMACEUTICALS, INC.-2005-BP-07931BP

PATIENT
  Sex: Male

DRUGS (3)
  1. VIRAMUNE [Suspect]
     Indication: HIV INFECTION
     Dates: start: 20040818
  2. DIDANOSINE [Suspect]
     Indication: HIV INFECTION
     Dates: start: 20040818
  3. ZIDOVUDINE TABLETS (VIRAMUNE REFERENCE) [Suspect]
     Indication: HIV INFECTION
     Dates: start: 20040818

REACTIONS (2)
  - BLOOD AMYLASE INCREASED [None]
  - LIPASE INCREASED [None]
